FAERS Safety Report 5722412-6 (Version None)
Quarter: 2008Q2

REPORT INFORMATION
  Report Type: 
  Country: None (occurrence: None)
  Receive Date: 20080429
  Receipt Date: 20071012
  Transmission Date: 20081010
  Serious: Yes (Hospitalization)
  Sender: FDA-Public Use
  Company Number: US-ASTRAZENECA-2007UW23767

PATIENT
  Age: 76 Year
  Sex: Female
  Weight: 93.9 kg

DRUGS (7)
  1. NEXIUM [Suspect]
     Indication: GASTRITIS
  2. NEXIUM [Suspect]
     Route: 048
     Dates: start: 20070601
  3. DIOVAN [Concomitant]
  4. VERAPAMIL [Concomitant]
  5. DETROL [Concomitant]
  6. ASPIRIN [Concomitant]
  7. CARAFATE [Concomitant]

REACTIONS (3)
  - CHEST PAIN [None]
  - GASTRIC POLYPS [None]
  - STOMACH DISCOMFORT [None]
